FAERS Safety Report 8820453 (Version 1)
Quarter: 2012Q4

REPORT INFORMATION
  Report Type: 
  Country: US (occurrence: US)
  Receive Date: 20121002
  Receipt Date: 20121002
  Transmission Date: 20130627
  Serious: Yes (Hospitalization, Other)
  Sender: FDA-Public Use
  Company Number: US-ASTRAZENECA-2012SE74935

PATIENT
  Age: 74 Year
  Sex: Female
  Weight: 67.1 kg

DRUGS (3)
  1. SYMBICORT PMDI [Suspect]
     Indication: CHRONIC OBSTRUCTIVE PULMONARY DISEASE
     Dosage: UNKNKOWN
     Route: 055
     Dates: start: 201207
  2. WARFARIN [Concomitant]
     Indication: PULMONARY THROMBOSIS
     Route: 048
  3. UNSPECIFIED MEDICATION [Concomitant]

REACTIONS (4)
  - Pulmonary thrombosis [Unknown]
  - Kidney infection [Not Recovered/Not Resolved]
  - Oropharyngeal pain [Unknown]
  - Throat irritation [Unknown]
